FAERS Safety Report 9694248 (Version 2)
Quarter: 2014Q1

REPORT INFORMATION
  Report Type: Spontaneous
  Country: US (occurrence: US)
  Receive Date: 20131118
  Receipt Date: 20140221
  Transmission Date: 20141002
  Serious: Yes (Other)
  Sender: FDA-Public Use
  Company Number: US-PFIZER INC-2013328011

PATIENT
  Age: 60 Year
  Sex: Female
  Weight: 63.5 kg

DRUGS (7)
  1. CHANTIX [Suspect]
     Indication: SMOKING CESSATION THERAPY
     Dosage: 0.5 MG, DAILY
     Route: 048
     Dates: start: 20131101
  2. CHANTIX [Suspect]
     Dosage: 0.5 MG, 2X/DAY
     Route: 048
     Dates: start: 201311, end: 201311
  3. CHANTIX [Suspect]
     Dosage: 0.5 MG, UNK
     Route: 048
     Dates: start: 201311
  4. ENBREL [Suspect]
     Indication: PRODUCT USED FOR UNKNOWN INDICATION
     Dosage: UNK
     Route: 065
  5. XANAX [Concomitant]
     Indication: ANXIETY
     Dosage: UNK
  6. KLONOPIN [Concomitant]
     Indication: SLEEP DISORDER
     Dosage: 1 MG, AS NEEDED
  7. KLONOPIN [Concomitant]
     Indication: INSOMNIA

REACTIONS (4)
  - Gastric ulcer [Unknown]
  - Tobacco user [Not Recovered/Not Resolved]
  - Food craving [Unknown]
  - Drug intolerance [Unknown]
